FAERS Safety Report 6161687-9 (Version None)
Quarter: 2009Q2

REPORT INFORMATION
  Report Type: 
  Country: None (occurrence: None)
  Receive Date: 20090421
  Receipt Date: 20090409
  Transmission Date: 20091009
  Serious: Yes (Other)
  Sender: FDA-Public Use
  Company Number: GB-TEVA-191177ISR

PATIENT

DRUGS (2)
  1. DOXORUBICIN [Suspect]
  2. EPIRUBICIN HYDROCHLORIDE [Interacting]

REACTIONS (4)
  - DRUG INTERACTION [None]
  - NAUSEA [None]
  - PANIC REACTION [None]
  - VOMITING [None]
